FAERS Safety Report 6604003-8 (Version None)
Quarter: 2010Q1

REPORT INFORMATION
  Report Type: 
  Country: None (occurrence: None)
  Receive Date: 20100226
  Receipt Date: 20090409
  Transmission Date: 20100710
  Serious: No
  Sender: FDA-Public Use
  Company Number: A0777903A

PATIENT
  Age: 15 Year
  Sex: Female

DRUGS (1)
  1. LAMOTRIGINE [Suspect]
     Dosage: 50MG PER DAY
     Route: 048
     Dates: start: 20090309

REACTIONS (2)
  - RASH [None]
  - RASH PRURITIC [None]
